FAERS Safety Report 7963154-6 (Version None)
Quarter: 2011Q4

REPORT INFORMATION
  Report Type: 
  Country: None (occurrence: None)
  Receive Date: 20111207
  Receipt Date: 20111115
  Transmission Date: 20120403
  Serious: Yes (Hospitalization)
  Sender: FDA-Public Use
  Company Number: PHHO2011US16145

PATIENT
  Sex: Male
  Weight: 120 kg

DRUGS (2)
  1. AGOMELATINE [Suspect]
     Indication: MAJOR DEPRESSION
     Dosage: 1 MG, QD
     Route: 048
     Dates: start: 20101109
  2. EXFORGE HCT [Suspect]
     Indication: HYPERTENSION
     Dosage: UNK
     Dates: start: 20101220, end: 20110902

REACTIONS (1)
  - DEHYDRATION [None]
